FAERS Safety Report 18784779 (Version 3)
Quarter: 2021Q1

REPORT INFORMATION
  Report Type: Report from Study
  Country: None (occurrence: ES)
  Receive Date: 20210126
  Receipt Date: 20210309
  Transmission Date: 20210419
  Serious: Yes (Disabling, Other)
  Sender: FDA-Public Use
  Company Number: ES-ABBVIE-21K-144-3740982-00

PATIENT
  Age: 76 Year
  Sex: Male

DRUGS (3)
  1. DUODOPA [Suspect]
     Active Substance: CARBIDOPA\LEVODOPA
     Indication: PARKINSON^S DISEASE
     Route: 050
     Dates: start: 20200226, end: 202101
  2. DUODOPA [Suspect]
     Active Substance: CARBIDOPA\LEVODOPA
  3. XADAGO [Concomitant]
     Active Substance: SAFINAMIDE MESYLATE
     Indication: PRODUCT USED FOR UNKNOWN INDICATION
     Dosage: 1 PILL AT BREAKFAST
     Dates: start: 20210105

REACTIONS (11)
  - Mobility decreased [Unknown]
  - Bedridden [Not Recovered/Not Resolved]
  - Feeling abnormal [Unknown]
  - Gait inability [Not Recovered/Not Resolved]
  - Intentional medical device removal by patient [Unknown]
  - Aphasia [Not Recovered/Not Resolved]
  - Weight decreased [Recovered/Resolved]
  - Eating disorder [Not Recovered/Not Resolved]
  - Therapeutic product effect incomplete [Unknown]
  - Pernicious anaemia [Not Recovered/Not Resolved]
  - Gait disturbance [Not Recovered/Not Resolved]

NARRATIVE: CASE EVENT DATE: 202002
